FAERS Safety Report 11402435 (Version 1)
Quarter: 2015Q3

REPORT INFORMATION
  Report Type: Spontaneous
  Country: US (occurrence: US)
  Receive Date: 20150821
  Receipt Date: 20150821
  Transmission Date: 20151125
  Serious: No
  Sender: FDA-Public Use
  Company Number: US-ROCHE-1283388

PATIENT
  Sex: Male

DRUGS (3)
  1. JANUVIA [Concomitant]
     Active Substance: SITAGLIPTIN PHOSPHATE
  2. RIBAVIRIN. [Suspect]
     Active Substance: RIBAVIRIN
     Indication: CHRONIC HEPATITIS C
     Route: 065
     Dates: start: 20130925
  3. PEGASYS [Suspect]
     Active Substance: PEGINTERFERON ALFA-2A
     Indication: CHRONIC HEPATITIS C
     Route: 065
     Dates: start: 20130925

REACTIONS (6)
  - Arthralgia [Recovered/Resolved]
  - Lacrimation increased [Unknown]
  - Headache [Recovered/Resolved]
  - Pain [Recovered/Resolved]
  - Scleral discolouration [Unknown]
  - Blood glucose increased [Recovered/Resolved]
